FAERS Safety Report 10613693 (Version 2)
Quarter: 2014Q4

REPORT INFORMATION
  Report Type: Spontaneous
  Country: US (occurrence: US)
  Receive Date: 20141128
  Receipt Date: 20141128
  Transmission Date: 20150529
  Serious: No
  Sender: FDA-Public Use
  Company Number: US-GLAXOSMITHKLINE-A1050707A

PATIENT

DRUGS (3)
  1. WELLBUTRIN SR [Suspect]
     Active Substance: BUPROPION HYDROCHLORIDE
     Indication: DEPRESSION
     Route: 048
     Dates: start: 20060508
  2. VALTREX [Concomitant]
     Active Substance: VALACYCLOVIR HYDROCHLORIDE
     Dates: start: 201104
  3. VERAMYST [Concomitant]
     Active Substance: FLUTICASONE FUROATE
     Dates: start: 201109

REACTIONS (2)
  - Adverse event [Unknown]
  - Underdose [Unknown]
